FAERS Safety Report 5189230-1 (Version None)
Quarter: 2006Q4

REPORT INFORMATION
  Report Type: 
  Country: None (occurrence: None)
  Receive Date: 20061215
  Receipt Date: 20061205
  Transmission Date: 20070319
  Serious: Yes (Other)
  Sender: FDA-Public Use
  Company Number: 2006112090

PATIENT
  Age: 31 Year
  Sex: Male

DRUGS (1)
  1. CAVERJECT [Suspect]
     Dosage: 5 MCG

REACTIONS (4)
  - DEVICE BREAKAGE [None]
  - FOREIGN BODY TRAUMA [None]
  - INJURY [None]
  - PENIS DISORDER [None]
